FAERS Safety Report 6277490-5 (Version None)
Quarter: 2009Q3

REPORT INFORMATION
  Report Type: 
  Country: None (occurrence: None)
  Receive Date: 20090720
  Receipt Date: 20090625
  Transmission Date: 20100115
  Serious: Yes (Hospitalization)
  Sender: FDA-Public Use
  Company Number: 2009EU002522

PATIENT
  Age: 64 Year
  Sex: Female

DRUGS (4)
  1. PROGRAF [Suspect]
     Indication: LIVER TRANSPLANT
     Dosage: 10 MG, UID/QD, ORAL
     Route: 048
     Dates: start: 20080820, end: 20090128
  2. CARVEDILOL [Concomitant]
  3. OMEPRAZOL [Concomitant]
  4. CELLCEPT [Concomitant]

REACTIONS (2)
  - EYE INFECTION INTRAOCULAR [None]
  - RETINOPATHY [None]
